FAERS Safety Report 8301889-6 (Version None)
Quarter: 2012Q2

REPORT INFORMATION
  Report Type: 
  Country: None (occurrence: None)
  Receive Date: 20120420
  Receipt Date: 20120410
  Transmission Date: 20120825
  Serious: Yes (Hospitalization)
  Sender: FDA-Public Use
  Company Number: JP-VERTEX PHARMACEUTICALS INC.-AE-2012-005288

PATIENT
  Age: 69 Year
  Sex: Male

DRUGS (11)
  1. REBETOL [Concomitant]
     Route: 048
     Dates: start: 20120324, end: 20120331
  2. BISOPROLOL FUMARATE [Concomitant]
     Indication: ARRHYTHMIA
     Route: 048
     Dates: start: 20100814
  3. SUNRYTHM [Concomitant]
     Indication: ARRHYTHMIA
     Route: 048
     Dates: start: 20110917
  4. PEG-INTRON [Concomitant]
     Dates: start: 20120316, end: 20120331
  5. NORVASC [Concomitant]
     Indication: HYPERTENSION
     Route: 048
     Dates: start: 20120114, end: 20120330
  6. REBETOL [Concomitant]
     Indication: HEPATITIS C
     Route: 048
     Dates: start: 20120302, end: 20120323
  7. TELAVIC (TELAPREVIR) [Suspect]
     Indication: HEPATITIS C
     Route: 048
     Dates: start: 20120302, end: 20120330
  8. PEG-INTRON [Concomitant]
     Indication: HEPATITIS C
     Route: 051
     Dates: start: 20120302, end: 20120309
  9. CANDESARTAN CILEXETIL [Concomitant]
     Route: 048
     Dates: start: 20100731, end: 20120310
  10. FEBURIC [Concomitant]
     Route: 048
  11. ASPIRIN [Concomitant]
     Indication: ARRHYTHMIA
     Route: 048
     Dates: start: 20101225

REACTIONS (2)
  - PNEUMONIA [None]
  - ACUTE RESPIRATORY DISTRESS SYNDROME [None]
